FAERS Safety Report 18087571 (Version 2)
Quarter: 2022Q1

REPORT INFORMATION
  Report Type: Spontaneous
  Country: MX (occurrence: MX)
  Receive Date: 20200729
  Receipt Date: 20220318
  Transmission Date: 20220424
  Serious: Yes (Other)
  Sender: FDA-Public Use
  Company Number: MX-PFIZER INC-2020286093

PATIENT
  Age: 35 Year
  Sex: Female

DRUGS (6)
  1. METHOTREXATE SODIUM [Suspect]
     Active Substance: METHOTREXATE SODIUM
     Indication: Vogt-Koyanagi-Harada disease
     Dosage: 20 MG, WEEKLY
     Route: 048
  2. METHOTREXATE [Suspect]
     Active Substance: METHOTREXATE
     Indication: Vogt-Koyanagi-Harada disease
     Dosage: UNK, INTRAVITREAL, 400U/0.1 ML (ADMINISTERED IN BOTH EYES)
  3. TRIAMCINOLONE [Suspect]
     Active Substance: TRIAMCINOLONE
     Indication: Vogt-Koyanagi-Harada disease
     Dosage: UNK, INTRAVITREAL
  4. TRIAMCINOLONE [Suspect]
     Active Substance: TRIAMCINOLONE
     Dosage: UNK, INTRAVITREAL (ANOTHER DOSE OF INTRAVITREAL TRIAMCINOLONE WAS GIVEN 6 MONTHS LATER)
  5. CYCLOPHOSPHAMIDE [Suspect]
     Active Substance: CYCLOPHOSPHAMIDE
     Indication: Vogt-Koyanagi-Harada disease
     Dosage: UNK, MONTHLY
     Route: 042
  6. DICLOFENAC [Suspect]
     Active Substance: DICLOFENAC
     Indication: Vogt-Koyanagi-Harada disease
     Dosage: UNK
     Route: 061

REACTIONS (5)
  - Lenticular opacities [Recovered/Resolved]
  - Condition aggravated [Recovered/Resolved]
  - Drug ineffective [Unknown]
  - Off label use [Unknown]
  - Product use in unapproved indication [Unknown]
